FAERS Safety Report 5265436-8 (Version None)
Quarter: 2007Q1

REPORT INFORMATION
  Report Type: 
  Country: None (occurrence: None)
  Receive Date: 20070314
  Receipt Date: 20070302
  Transmission Date: 20070707
  Serious: Yes (Other)
  Sender: FDA-Public Use
  Company Number: FR-PFIZER INC-2007009190

PATIENT
  Sex: Male
  Weight: 80 kg

DRUGS (8)
  1. LYRICA [Suspect]
     Indication: PAIN
     Route: 048
  2. LYRICA [Interacting]
     Indication: NEURALGIA
  3. INSULIN ASPART [Interacting]
     Indication: DIABETES MELLITUS INSULIN-DEPENDENT
     Dosage: DAILY DOSE:50I.U.
     Route: 058
  4. AMLODIPINE [Concomitant]
     Route: 048
  5. LOPRESSOR [Concomitant]
     Route: 048
  6. FRACTAL [Concomitant]
     Route: 048
  7. PERMIXON [Concomitant]
     Route: 048
  8. SINTROM [Interacting]
     Route: 048

REACTIONS (7)
  - DEPRESSED LEVEL OF CONSCIOUSNESS [None]
  - DRUG INTERACTION [None]
  - GAIT DISTURBANCE [None]
  - HYPOGLYCAEMIA [None]
  - MALAISE [None]
  - PAIN [None]
  - URINARY INCONTINENCE [None]
